FAERS Safety Report 6847555-5 (Version None)
Quarter: 2010Q3

REPORT INFORMATION
  Report Type: 
  Country: None (occurrence: None)
  Receive Date: 20100714
  Receipt Date: 20100708
  Transmission Date: 20110219
  Serious: Yes (Other)
  Sender: FDA-Public Use
  Company Number: 20108980

PATIENT
  Sex: Female

DRUGS (1)
  1. LIORESAL [Suspect]
     Indication: MUSCLE SPASTICITY
     Dosage: 649.2 MCG, DAILY, INTRATHECAL
     Route: 037

REACTIONS (4)
  - BLISTER [None]
  - INCISION SITE ERYTHEMA [None]
  - PURULENCE [None]
  - SCAR [None]
